FAERS Safety Report 9983365 (Version 1)
Quarter: 2014Q1

REPORT INFORMATION
  Report Type: Spontaneous
  Country: US (occurrence: US)
  Receive Date: 20140307
  Receipt Date: 20140307
  Transmission Date: 20141002
  Serious: Yes (Hospitalization, Disabling)
  Sender: FDA-Public Use
  Company Number: US-SA-2014SA027493

PATIENT
  Age: 76 Year
  Sex: Male

DRUGS (2)
  1. LANTUS [Suspect]
     Dosage: TAKEN FROM: AT LEAST 8 YEARS AGO
     Route: 051
  2. NOVOLOG [Suspect]
     Route: 065

REACTIONS (3)
  - Cardiac disorder [Unknown]
  - Walking aid user [Unknown]
  - Blood glucose abnormal [Unknown]
